FAERS Safety Report 4930221-0 (Version None)
Quarter: 2006Q1

REPORT INFORMATION
  Report Type: 
  Country: None (occurrence: None)
  Receive Date: 20060228
  Receipt Date: 20060210
  Transmission Date: 20060701
  Serious: Yes (Other)
  Sender: FDA-Public Use
  Company Number: JP 051007920

PATIENT
  Age: 76 Year
  Sex: Female
  Weight: 52.4 kg

DRUGS (3)
  1. EVISTA [Suspect]
     Indication: OSTEOPOROSIS POSTMENOPAUSAL
     Dosage: 60 MG, DAILY (1/D), ORAL
     Route: 048
     Dates: start: 20050214, end: 20050425
  2. PLATIBIT (ALFACALCIDOL) [Concomitant]
  3. METHARMON F [Concomitant]

REACTIONS (3)
  - ENDOMETRIAL ATROPHY [None]
  - ENDOMETRIAL HYPERTROPHY [None]
  - VULVAL OEDEMA [None]
